FAERS Safety Report 5065323-4 (Version None)
Quarter: 2006Q3

REPORT INFORMATION
  Report Type: 
  Country: None (occurrence: None)
  Receive Date: 20060731
  Receipt Date: 20060718
  Transmission Date: 20061208
  Serious: Yes (Other)
  Sender: FDA-Public Use
  Company Number: US-JNJFOC-20060703754

PATIENT
  Sex: Male
  Weight: 65.77 kg

DRUGS (1)
  1. CONCERTA [Suspect]
     Indication: ATTENTION DEFICIT/HYPERACTIVITY DISORDER
     Route: 048

REACTIONS (4)
  - DYSPEPSIA [None]
  - GASTRIC DISORDER [None]
  - GASTRITIS [None]
  - IMPAIRED GASTRIC EMPTYING [None]
